FAERS Safety Report 5004580-7 (Version None)
Quarter: 2006Q2

REPORT INFORMATION
  Report Type: 
  Country: None (occurrence: None)
  Receive Date: 20060512
  Receipt Date: 20060509
  Transmission Date: 20061013
  Serious: Yes (Other)
  Sender: FDA-Public Use
  Company Number: 1997-000283

PATIENT
  Age: 37 Year
  Sex: Male
  Weight: 80 kg

DRUGS (5)
  1. NELFINAVIR MESILATE (NELFINAVIR MESILATE) [Suspect]
     Indication: HIV TEST POSITIVE
     Dosage: (TID), ORAL
     Route: 048
     Dates: start: 19970423, end: 19970701
  2. NELFINAVIR MESILATE (NELFINAVIR MESILATE) [Suspect]
     Indication: HIV TEST POSITIVE
     Dosage: (TID), ORAL
     Route: 048
     Dates: start: 19970901
  3. AMPRENAVIR (AMPRENAVIR) [Suspect]
     Indication: HIV TEST POSITIVE
     Dosage: (TID), ORAL
     Route: 048
     Dates: start: 19970423, end: 19970701
  4. AMPRENAVIR (AMPRENAVIR) [Suspect]
     Indication: HIV TEST POSITIVE
     Dosage: (TID), ORAL
     Route: 048
     Dates: start: 19970902
  5. LOMOTIL [Concomitant]

REACTIONS (9)
  - ATRIOVENTRICULAR BLOCK [None]
  - ATRIOVENTRICULAR BLOCK FIRST DEGREE [None]
  - AV DISSOCIATION [None]
  - BRADYCARDIA [None]
  - ELECTROCARDIOGRAM QT CORRECTED INTERVAL PROLONGED [None]
  - ELECTROCARDIOGRAM QT PROLONGED [None]
  - NODAL ARRHYTHMIA [None]
  - SINUS BRADYCARDIA [None]
  - SUPRAVENTRICULAR EXTRASYSTOLES [None]
